FAERS Safety Report 7293394-3 (Version None)
Quarter: 2011Q1

REPORT INFORMATION
  Report Type: 
  Country: None (occurrence: None)
  Receive Date: 20110204
  Receipt Date: 20110121
  Transmission Date: 20110831
  Serious: Yes (Other)
  Sender: FDA-Public Use
  Company Number: 2011EK000005

PATIENT
  Age: 66 Year
  Sex: Male
  Weight: 70 kg

DRUGS (6)
  1. PREV MEDS [Concomitant]
  2. CARDENE [Suspect]
     Indication: PROCEDURAL HYPERTENSION
     Dosage: 5 MG; IV
     Route: 042
     Dates: start: 20110114, end: 20110114
  3. DOBUTAMINE HCL [Concomitant]
  4. FENTANYL [Concomitant]
  5. EPINEPHRINE [Concomitant]
  6. PROPOFOL [Concomitant]

REACTIONS (2)
  - POST PROCEDURAL COMPLICATION [None]
  - HYPOXIA [None]
